FAERS Safety Report 6142246-0 (Version None)
Quarter: 2009Q2

REPORT INFORMATION
  Report Type: 
  Country: None (occurrence: None)
  Receive Date: 20090401
  Receipt Date: 20090401
  Transmission Date: 20091009
  Serious: Yes (Hospitalization)
  Sender: FDA-Public Use
  Company Number: None

PATIENT
  Age: 55 Year
  Sex: Female

DRUGS (2)
  1. LASIX [Suspect]
  2. FLUOXETINE HCL [Suspect]

REACTIONS (3)
  - CHEST PAIN [None]
  - HYPOKALAEMIA [None]
  - HYPOVOLAEMIA [None]
